FAERS Safety Report 21155294 (Version 2)
Quarter: 2022Q3

REPORT INFORMATION
  Report Type: Spontaneous
  Country: GB (occurrence: GB)
  Receive Date: 20220801
  Receipt Date: 20220817
  Transmission Date: 20221027
  Serious: Yes (Hospitalization)
  Sender: FDA-Public Use
  Company Number: GB-MYLANLABS-2022M1080313

PATIENT
  Sex: Male

DRUGS (1)
  1. CLOZARIL [Suspect]
     Active Substance: CLOZAPINE
     Indication: Schizophrenia
     Dosage: UNK
     Route: 048
     Dates: start: 20210416, end: 20220715

REACTIONS (5)
  - Hospitalisation [Unknown]
  - Treatment noncompliance [Unknown]
  - Aggression [Unknown]
  - Confusional state [Unknown]
  - Agitation [Unknown]
